FAERS Safety Report 4564455-4 (Version None)
Quarter: 2005Q1

REPORT INFORMATION
  Report Type: 
  Country: None (occurrence: None)
  Receive Date: 20050128
  Receipt Date: 20040506
  Transmission Date: 20050727
  Serious: No
  Sender: FDA-Public Use
  Company Number: US-BRISTOL-MYERS SQUIBB COMPANY-12581450

PATIENT
  Age: 71 Year
  Sex: Male
  Weight: 79 kg

DRUGS (3)
  1. ULTRAVATE [Suspect]
     Indication: RASH
     Route: 061
  2. FLOMAX [Concomitant]
  3. NORVASC [Concomitant]

REACTIONS (6)
  - OVERDOSE [None]
  - PAIN [None]
  - PRURITUS [None]
  - SKIN BURNING SENSATION [None]
  - SKIN HAEMORRHAGE [None]
  - SKIN SWELLING [None]
